FAERS Safety Report 8824708 (Version 4)
Quarter: 2012Q4

REPORT INFORMATION
  Report Type: 
  Country: JP (occurrence: JP)
  Receive Date: 20121004
  Receipt Date: 20121121
  Transmission Date: 20130627
  Serious: Yes (Hospitalization, Other)
  Sender: FDA-Public Use
  Company Number: JP-SANOFI-AVENTIS-2012SA071093

PATIENT
  Age: 8 Month
  Sex: Male
  Weight: 4.3 kg

DRUGS (60)
  1. LASIX [Suspect]
     Indication: PULMONARY CONGESTION
     Dosage: 1.11 mg/kg/day
     Route: 048
     Dates: start: 20110506, end: 20110525
  2. LASIX [Suspect]
     Indication: OLIGURIA
     Dosage: 1.11 mg/kg/day
     Route: 048
     Dates: start: 20110506, end: 20110525
  3. LASIX [Suspect]
     Indication: OEDEMA
     Dosage: 1.11 mg/kg/day
     Route: 048
     Dates: start: 20110506, end: 20110525
  4. LASIX [Suspect]
     Indication: PULMONARY CONGESTION
     Dosage: 2 mg/kg/day
     Route: 048
     Dates: start: 20110526, end: 20110622
  5. LASIX [Suspect]
     Indication: OLIGURIA
     Dosage: 2 mg/kg/day
     Route: 048
     Dates: start: 20110526, end: 20110622
  6. LASIX [Suspect]
     Indication: OEDEMA
     Dosage: 2 mg/kg/day
     Route: 048
     Dates: start: 20110526, end: 20110622
  7. LASIX [Suspect]
     Indication: PULMONARY CONGESTION
     Dosage: 2.09 mg/kg/day
     Route: 048
     Dates: start: 20110622, end: 20110624
  8. LASIX [Suspect]
     Indication: OLIGURIA
     Dosage: 2.09 mg/kg/day
     Route: 048
     Dates: start: 20110622, end: 20110624
  9. LASIX [Suspect]
     Indication: OEDEMA
     Dosage: 2.09 mg/kg/day
     Route: 048
     Dates: start: 20110622, end: 20110624
  10. LASIX [Suspect]
     Indication: PULMONARY CONGESTION
     Dosage: 3.18 mg/kg/day
     Route: 048
     Dates: start: 20110624, end: 20110626
  11. LASIX [Suspect]
     Indication: OLIGURIA
     Dosage: 3.18 mg/kg/day
     Route: 048
     Dates: start: 20110624, end: 20110626
  12. LASIX [Suspect]
     Indication: OEDEMA
     Dosage: 3.18 mg/kg/day
     Route: 048
     Dates: start: 20110624, end: 20110626
  13. LASIX [Suspect]
     Indication: PULMONARY CONGESTION
     Dosage: 0.8 mg/kg/day
     Route: 048
     Dates: start: 20110720, end: 20110722
  14. LASIX [Suspect]
     Indication: OLIGURIA
     Dosage: 0.8 mg/kg/day
     Route: 048
     Dates: start: 20110720, end: 20110722
  15. LASIX [Suspect]
     Indication: OEDEMA
     Dosage: 0.8 mg/kg/day
     Route: 048
     Dates: start: 20110720, end: 20110722
  16. LASIX [Suspect]
     Indication: PULMONARY CONGESTION
     Dosage: 0.96 mg/kg/day
     Route: 048
     Dates: start: 20110722, end: 20110728
  17. LASIX [Suspect]
     Indication: OLIGURIA
     Dosage: 0.96 mg/kg/day
     Route: 048
     Dates: start: 20110722, end: 20110728
  18. LASIX [Suspect]
     Indication: OEDEMA
     Dosage: 0.96 mg/kg/day
     Route: 048
     Dates: start: 20110722, end: 20110728
  19. LASIX [Suspect]
     Indication: PULMONARY CONGESTION
     Dosage: 1.04 mg/kg/day
     Route: 048
     Dates: start: 20110626, end: 20110630
  20. LASIX [Suspect]
     Indication: OLIGURIA
     Dosage: 1.04 mg/kg/day
     Route: 048
     Dates: start: 20110626, end: 20110630
  21. LASIX [Suspect]
     Indication: OEDEMA
     Dosage: 1.04 mg/kg/day
     Route: 048
     Dates: start: 20110626, end: 20110630
  22. LASIX [Suspect]
     Indication: PULMONARY CONGESTION
     Dosage: 0.91 mg/kg/day
     Route: 048
     Dates: start: 20110728, end: 20110824
  23. LASIX [Suspect]
     Indication: OLIGURIA
     Dosage: 0.91 mg/kg/day
     Route: 048
     Dates: start: 20110728, end: 20110824
  24. LASIX [Suspect]
     Indication: OEDEMA
     Dosage: 0.91 mg/kg/day
     Route: 048
     Dates: start: 20110728, end: 20110824
  25. LASIX [Suspect]
     Indication: PULMONARY CONGESTION
     Dosage: 0.85 mg/kg/day
     Route: 048
     Dates: start: 20110630, end: 20110711
  26. LASIX [Suspect]
     Indication: OLIGURIA
     Dosage: 0.85 mg/kg/day
     Route: 048
     Dates: start: 20110630, end: 20110711
  27. LASIX [Suspect]
     Indication: OEDEMA
     Dosage: 0.85 mg/kg/day
     Route: 048
     Dates: start: 20110630, end: 20110711
  28. LASIX [Suspect]
     Indication: PULMONARY CONGESTION
     Dosage: 1.94 mg/kg/day
     Route: 048
     Dates: start: 20110825, end: 20110829
  29. LASIX [Suspect]
     Indication: OLIGURIA
     Dosage: 1.94 mg/kg/day
     Route: 048
     Dates: start: 20110825, end: 20110829
  30. LASIX [Suspect]
     Indication: OEDEMA
     Dosage: 1.94 mg/kg/day
     Route: 048
     Dates: start: 20110825, end: 20110829
  31. LASIX [Suspect]
     Indication: PULMONARY CONGESTION
     Dosage: 1 mg/kg/day
     Route: 048
     Dates: start: 20110712, end: 20110720
  32. LASIX [Suspect]
     Indication: OLIGURIA
     Dosage: 1 mg/kg/day
     Route: 048
     Dates: start: 20110712, end: 20110720
  33. LASIX [Suspect]
     Indication: OEDEMA
     Dosage: 1 mg/kg/day
     Route: 048
     Dates: start: 20110712, end: 20110720
  34. LASIX [Suspect]
     Indication: PULMONARY CONGESTION
     Dosage: 2.56 mg/kg/day
     Route: 048
     Dates: start: 20110829, end: 20110907
  35. LASIX [Suspect]
     Indication: OLIGURIA
     Dosage: 2.56 mg/kg/day
     Route: 048
     Dates: start: 20110829, end: 20110907
  36. LASIX [Suspect]
     Indication: OEDEMA
     Dosage: 2.56 mg/kg/day
     Route: 048
     Dates: start: 20110829, end: 20110907
  37. LASIX [Suspect]
     Indication: PULMONARY CONGESTION
     Dosage: 2.25 mg/kg/day
     Route: 048
     Dates: start: 20110907, end: 20111004
  38. LASIX [Suspect]
     Indication: OLIGURIA
     Dosage: 2.25 mg/kg/day
     Route: 048
     Dates: start: 20110907, end: 20111004
  39. LASIX [Suspect]
     Indication: OEDEMA
     Dosage: 2.25 mg/kg/day
     Route: 048
     Dates: start: 20110907, end: 20111004
  40. LASIX [Suspect]
     Indication: PULMONARY CONGESTION
     Dosage: 2.25 mg/kg/day
     Route: 048
     Dates: start: 20111004, end: 20111219
  41. LASIX [Suspect]
     Indication: OLIGURIA
     Dosage: 2.25 mg/kg/day
     Route: 048
     Dates: start: 20111004, end: 20111219
  42. LASIX [Suspect]
     Indication: OEDEMA
     Dosage: 2.25 mg/kg/day
     Route: 048
     Dates: start: 20111004, end: 20111219
  43. ONON [Suspect]
     Indication: PROPHYLAXIS AGAINST BRONCHOSPASM
     Dosage: dose: 7.14 mg/kg/day
     Route: 048
     Dates: start: 20111130, end: 20111215
  44. SILDENAFIL CITRATE [Concomitant]
     Route: 048
  45. SODIUM CHLORIDE [Concomitant]
     Indication: ELECTROLYTE REPLACEMENT
     Dosage: 116.28 mg/kg/day
     Route: 048
     Dates: start: 20111216, end: 20111222
  46. SODIUM CHLORIDE [Concomitant]
     Indication: ELECTROLYTE REPLACEMENT
     Dosage: 273.97 mg/kg/day
     Route: 048
     Dates: start: 20110802, end: 20111215
  47. INCREMIN [Concomitant]
     Indication: ANEMIA
     Dosage: strength: 5%, 5.14 mg/kg/body
     Route: 048
     Dates: start: 20110826
  48. PULMICORT [Concomitant]
     Indication: RESPIRATION ABNORMAL
     Dosage: 0.10 mg/kg/day
     Route: 055
     Dates: start: 20110929, end: 20120403
  49. ALDACTONE-A [Concomitant]
     Indication: PULMONARY CONGESTION
     Dosage: 2.05 mg/kg/day
     Route: 048
     Dates: start: 20111004, end: 20111219
  50. ALDACTONE-A [Concomitant]
     Indication: OLIGURIA
     Dosage: 2.05 mg/kg/day
     Route: 048
     Dates: start: 20111004, end: 20111219
  51. ALDACTONE-A [Concomitant]
     Indication: EDEMA
     Dosage: 2.05 mg/kg/day
     Route: 048
     Dates: start: 20111004, end: 20111219
  52. MUCODYNE [Concomitant]
     Indication: SECRETION DISCHARGE
     Dosage: 20.93 mg/kg/day
     Route: 048
     Dates: start: 20110930, end: 20120127
  53. MUCODYNE [Concomitant]
     Indication: RESPIRATION ABNORMAL
     Dosage: 20.93 mg/kg/day
     Route: 048
     Dates: start: 20110930, end: 20120127
  54. MUCOSOLVAN [Concomitant]
     Indication: RESPIRATION ABNORMAL
     Route: 048
     Dates: start: 20110930, end: 20120127
  55. CERCINE [Concomitant]
     Indication: INSOMNIA
     Dosage: 0.91mg/kg/day
     Route: 048
     Dates: start: 20111017, end: 20120223
  56. GRAN [Concomitant]
     Dosage: strength: 75 mcg
  57. CILASTATIN/IMIPENEM [Concomitant]
     Route: 041
     Dates: end: 20111215
  58. DIAMOX [Concomitant]
  59. MEPTIN [Concomitant]
     Indication: RESPIRATION ABNORMAL
     Dosage: 4 mg/kg/day
     Route: 055
     Dates: start: 20111109, end: 20120319
  60. MIYA-BM [Concomitant]
     Indication: GASTROINTESTINAL DISORDER NOS
     Dosage: 68.18 mg/kg/day
     Route: 048
     Dates: start: 20111116, end: 20111215

REACTIONS (2)
  - Calculus urinary [Unknown]
  - Haematuria [Unknown]
